FAERS Safety Report 17445480 (Version 1)
Quarter: 2020Q1

REPORT INFORMATION
  Report Type: Spontaneous
  Country: FR (occurrence: FR)
  Receive Date: 20200221
  Receipt Date: 20200221
  Transmission Date: 20200409
  Serious: Yes (Other)
  Sender: FDA-Public Use
  Company Number: PHHY2019FR211589

PATIENT
  Age: 63 Year
  Sex: Female

DRUGS (1)
  1. ANAFRANIL [Suspect]
     Active Substance: CLOMIPRAMINE HYDROCHLORIDE
     Indication: FACIAL NEURALGIA
     Dosage: 75 MG, QD
     Route: 048
     Dates: start: 20190727, end: 20190811

REACTIONS (8)
  - Tremor [Recovering/Resolving]
  - Tachycardia [Recovered/Resolved]
  - Dysuria [Recovering/Resolving]
  - Medication error [Recovered/Resolved]
  - Malaise [Recovered/Resolved]
  - Asthenia [Recovered/Resolved]
  - Product dispensing error [Recovered/Resolved]
  - Wrong dose [Recovered/Resolved]

NARRATIVE: CASE EVENT DATE: 20190727
